FAERS Safety Report 8477296-2 (Version None)
Quarter: 2012Q2

REPORT INFORMATION
  Report Type: 
  Country: None (occurrence: None)
  Receive Date: 20120629
  Receipt Date: 20120619
  Transmission Date: 20120825
  Serious: Yes (Other)
  Sender: FDA-Public Use
  Company Number: US-JNJFOC-20120610417

PATIENT
  Sex: Female
  Weight: 58.97 kg

DRUGS (1)
  1. REMICADE [Suspect]
     Indication: RHEUMATOID ARTHRITIS
     Route: 042
     Dates: start: 20120401

REACTIONS (6)
  - URINARY TRACT INFECTION [None]
  - HYPERSOMNIA [None]
  - ARTHRITIS [None]
  - VOMITING [None]
  - ABNORMAL LOSS OF WEIGHT [None]
  - DIARRHOEA [None]
